FAERS Safety Report 12929847 (Version 1)
Quarter: 2016Q4

REPORT INFORMATION
  Report Type: Spontaneous
  Country: US (occurrence: US)
  Receive Date: 20161110
  Receipt Date: 20161110
  Transmission Date: 20170207
  Serious: Yes (Other)
  Sender: FDA-Public Use
  Company Number: None

PATIENT
  Age: 79 Year
  Sex: Female
  Weight: 67.13 kg

DRUGS (1)
  1. BYETTA [Suspect]
     Active Substance: EXENATIDE
     Indication: DIABETES MELLITUS
     Dosage: PT ONLY USED 1 INJECTION
     Route: 058
     Dates: start: 201610

REACTIONS (2)
  - Visual acuity reduced [None]
  - Impaired driving ability [None]

NARRATIVE: CASE EVENT DATE: 20161014
